FAERS Safety Report 20310606 (Version 1)
Quarter: 2022Q1

REPORT INFORMATION
  Report Type: Spontaneous
  Country: US (occurrence: None)
  Receive Date: 20220107
  Receipt Date: 20220107
  Transmission Date: 20220424
  Serious: No
  Sender: FDA-Public Use
  Company Number: None

PATIENT
  Age: 57 Year
  Sex: Male

DRUGS (1)
  1. NUCALA [Suspect]
     Active Substance: MEPOLIZUMAB
     Dosage: OTHER FREQUENCY : OTHER;?
     Route: 058
     Dates: start: 202110

REACTIONS (1)
  - Incorrect dose administered [None]

NARRATIVE: CASE EVENT DATE: 20211005
